FAERS Safety Report 9242410 (Version 1)
Quarter: 2013Q2

REPORT INFORMATION
  Report Type: Spontaneous
  Country: FR (occurrence: FR)
  Receive Date: 20130419
  Receipt Date: 20130419
  Transmission Date: 20140414
  Serious: Yes (Other)
  Sender: FDA-Public Use
  Company Number: FR-ABBOTT-13P-056-1071051-00

PATIENT
  Age: 26 Year
  Sex: Male
  Weight: 72 kg

DRUGS (1)
  1. HUMIRA [Suspect]
     Indication: PSORIASIS
     Dosage: TWO INJECTIONS OF 40 MG IN EACH THIGH
     Dates: start: 20130223

REACTIONS (11)
  - Chest discomfort [Recovered/Resolved]
  - Injection site erythema [Recovered/Resolved]
  - Polyarthritis [Unknown]
  - Injection site reaction [Unknown]
  - Rash [Unknown]
  - Rash macular [Recovered/Resolved]
  - Erythema [Recovered/Resolved]
  - Feeling hot [Recovered/Resolved]
  - Anxiety [Unknown]
  - Arthralgia [Recovered/Resolved]
  - Oedema peripheral [Recovered/Resolved]
